FAERS Safety Report 13954389 (Version 1)
Quarter: 2017Q3

REPORT INFORMATION
  Report Type: Spontaneous
  Country: US (occurrence: US)
  Receive Date: 20170909
  Receipt Date: 20170909
  Transmission Date: 20171128
  Serious: No
  Sender: FDA-Public Use
  Company Number: None

PATIENT
  Age: 69 Year
  Sex: Female
  Weight: 74.25 kg

DRUGS (8)
  1. PROGESTERONE. [Concomitant]
     Active Substance: PROGESTERONE
  2. ESTROGEN [Concomitant]
     Active Substance: ESTROGENS
  3. MAGNESIUM [Concomitant]
     Active Substance: MAGNESIUM
  4. CALCIUM [Concomitant]
     Active Substance: CALCIUM
  5. MAXIMUM STRENGTH GAS RELIEF ANTIFLATULENT [Suspect]
     Active Substance: DIMETHICONE
     Indication: PROPHYLAXIS
     Dosage: ?          QUANTITY:1 TABLET(S);?
     Route: 048
  6. LEVOTHYROXIN [Concomitant]
     Active Substance: LEVOTHYROXINE
  7. MAXIMUM STRENGTH GAS RELIEF ANTIFLATULENT [Suspect]
     Active Substance: DIMETHICONE
     Indication: FLATULENCE
     Dosage: ?          QUANTITY:1 TABLET(S);?
     Route: 048
  8. MULTI VITAMIN [Concomitant]
     Active Substance: VITAMINS

REACTIONS (6)
  - Product taste abnormal [None]
  - Abdominal pain [None]
  - Nausea [None]
  - Pyrexia [None]
  - Product solubility abnormal [None]
  - Chills [None]

NARRATIVE: CASE EVENT DATE: 20170907
